FAERS Safety Report 10654133 (Version 4)
Quarter: 2015Q1

REPORT INFORMATION
  Report Type: Spontaneous
  Country: JP (occurrence: JP)
  Receive Date: 20141216
  Receipt Date: 20150308
  Transmission Date: 20150720
  Serious: Yes (Hospitalization, Other)
  Sender: FDA-Public Use
  Company Number: PHHY2014JP163718

PATIENT
  Age: 63 Year
  Sex: Male

DRUGS (9)
  1. ANOPROLIN [Concomitant]
     Active Substance: ALLOPURINOL
     Dosage: 300 MG, QD
     Route: 048
     Dates: start: 20130222, end: 20130222
  2. BENECID [Concomitant]
     Active Substance: PROBENECID
     Dosage: 750 MG, QD
     Route: 048
     Dates: start: 20130222, end: 20130222
  3. VOLTAREN [Suspect]
     Active Substance: DICLOFENAC SODIUM
     Indication: GOUT
     Dosage: 25MG?75MG
     Route: 048
     Dates: start: 20130212, end: 20130219
  4. VOLTAREN [Suspect]
     Active Substance: DICLOFENAC SODIUM
     Dosage: 75 MG, QD
     Route: 048
     Dates: start: 20130222, end: 20130222
  5. ANOPROLIN [Concomitant]
     Active Substance: ALLOPURINOL
     Indication: GOUT
     Dosage: 300 MG, QD
     Route: 048
     Dates: start: 20130212, end: 20130219
  6. VOLTAREN [Suspect]
     Active Substance: DICLOFENAC SODIUM
     Dosage: 75 MG, QD
     Route: 048
     Dates: end: 20130222
  7. CALONAL [Concomitant]
     Active Substance: ACETAMINOPHEN
     Indication: PRODUCT USED FOR UNKNOWN INDICATION
     Route: 065
  8. PA [Concomitant]
     Active Substance: ASPIRIN\CAFFEINE\PROMETHAZINE\SALICYLAMIDE
     Indication: PRODUCT USED FOR UNKNOWN INDICATION
     Route: 065
  9. BENECID [Concomitant]
     Active Substance: PROBENECID
     Indication: GOUT
     Dosage: 750 MG, QD
     Route: 048
     Dates: start: 20130212, end: 20130219

REACTIONS (4)
  - Multi-organ failure [Recovered/Resolved]
  - Toxic epidermal necrolysis [Recovered/Resolved]
  - Shock [Recovered/Resolved]
  - Endophthalmitis [Recovered/Resolved]

NARRATIVE: CASE EVENT DATE: 20130222
